FAERS Safety Report 4705249-6 (Version None)
Quarter: 2005Q2

REPORT INFORMATION
  Report Type: 
  Country: None (occurrence: None)
  Receive Date: 20050629
  Receipt Date: 20050620
  Transmission Date: 20051028
  Serious: Yes (Hospitalization)
  Sender: FDA-Public Use
  Company Number: GXKR2005US01249

PATIENT
  Age: 2 Year
  Sex: Male

DRUGS (5)
  1. DEXAMETHASONE [Suspect]
     Indication: HERPES SIMPLEX
     Dosage: 0.6 MG/KG, QD, INTRAVENOUS
     Route: 042
  2. ACYCLOVIR [Suspect]
     Indication: HERPES SIMPLEX
     Dosage: 45 MG/KG, QD, INTRAVENOUS
     Route: 042
  3. CEFTRIAXONE [Concomitant]
  4. LORAZEPAM [Concomitant]
  5. PHENOBARBITAL TAB [Concomitant]

REACTIONS (7)
  - APALLIC SYNDROME [None]
  - CHOREOATHETOSIS [None]
  - ENCEPHALITIS HERPES [None]
  - EYELID PTOSIS [None]
  - HEMIPARESIS [None]
  - MENTAL STATUS CHANGES [None]
  - PYREXIA [None]
